FAERS Safety Report 8473164-0 (Version None)
Quarter: 2012Q2

REPORT INFORMATION
  Report Type: 
  Country: None (occurrence: None)
  Receive Date: 20120627
  Receipt Date: 20120618
  Transmission Date: 20120825
  Serious: Yes (Hospitalization)
  Sender: FDA-Public Use
  Company Number: FR-TEVA-344700ISR

PATIENT
  Sex: Female

DRUGS (10)
  1. ATARAX [Concomitant]
     Route: 048
  2. AMLODIPINE BESYLATE [Concomitant]
     Indication: ANGINA PECTORIS
     Route: 048
  3. ALPRAZOLAM [Suspect]
     Route: 048
     Dates: start: 20120315
  4. LYRICA [Concomitant]
     Route: 048
  5. PAROXETINE BASE [Concomitant]
     Indication: DEPRESSION
     Route: 048
  6. ACTIQ [Suspect]
     Route: 048
     Dates: start: 20120515
  7. BECLOMETHASONE DIPROPIONATE [Concomitant]
     Indication: ASTHMA
     Route: 048
  8. IRBESARTAN AND HYDROCHLOROTHIAZIDE [Concomitant]
     Indication: HYPERTENSION
     Route: 048
  9. FORADIL [Concomitant]
     Indication: ASTHMA
     Dosage: 24 MICROGRAM;
     Route: 055
  10. SPASFON (PHLOROGLUCINOL) [Concomitant]
     Indication: ABDOMINAL PAIN
     Route: 048

REACTIONS (4)
  - ALTERED STATE OF CONSCIOUSNESS [None]
  - CHOKING [None]
  - OFF LABEL USE [None]
  - SOMNOLENCE [None]
